FAERS Safety Report 5158644-8 (Version None)
Quarter: 2006Q4

REPORT INFORMATION
  Report Type: 
  Country: None (occurrence: None)
  Receive Date: 20061128
  Receipt Date: 20061120
  Transmission Date: 20070319
  Serious: Yes (Death, Other)
  Sender: FDA-Public Use
  Company Number: US-NOVOPROD-258700

PATIENT
  Sex: Female

DRUGS (1)
  1. NOVOSEVEN [Suspect]
     Indication: ILL-DEFINED DISORDER
     Dosage: UNKNOWN

REACTIONS (2)
  - INTRACARDIAC THROMBUS [None]
  - MYOCARDIAL INFARCTION [None]
